FAERS Safety Report 6427052-1 (Version None)
Quarter: 2009Q4

REPORT INFORMATION
  Report Type: 
  Country: None (occurrence: None)
  Receive Date: 20091103
  Receipt Date: 20091103
  Transmission Date: 20100525
  Serious: Yes (Life-Threatening)
  Sender: FDA-Public Use
  Company Number: None

PATIENT
  Age: 26 Year
  Sex: Male
  Weight: 56.6996 kg

DRUGS (1)
  1. GEODON [Suspect]
     Dates: start: 20081101, end: 20091001

REACTIONS (1)
  - MUSCULOSKELETAL CHEST PAIN [None]
